FAERS Safety Report 9480983 (Version 1)
Quarter: 2013Q3

REPORT INFORMATION
  Report Type: Spontaneous
  Country: US (occurrence: US)
  Receive Date: 20130828
  Receipt Date: 20130828
  Transmission Date: 20140515
  Serious: Yes (Hospitalization)
  Sender: FDA-Public Use
  Company Number: US-AMGEN-KDL145180

PATIENT
  Age: 26 Year
  Sex: Female

DRUGS (1)
  1. ENBREL [Suspect]
     Indication: BEHCET^S SYNDROME
     Dosage: 50 MG, QWK
     Route: 058
     Dates: start: 20011101

REACTIONS (4)
  - Appendicitis [Unknown]
  - Gallbladder disorder [Recovered/Resolved]
  - Gastrooesophageal reflux disease [Unknown]
  - Arthralgia [Unknown]
